FAERS Safety Report 5284809-0 (Version None)
Quarter: 2007Q2

REPORT INFORMATION
  Report Type: 
  Country: None (occurrence: None)
  Receive Date: 20070403
  Receipt Date: 20070321
  Transmission Date: 20071010
  Serious: Yes (Hospitalization)
  Sender: FDA-Public Use
  Company Number: FR-BRISTOL-MYERS SQUIBB COMPANY-13732250

PATIENT
  Age: 70 Decade
  Sex: Female

DRUGS (2)
  1. ERBITUX [Suspect]
     Indication: COLORECTAL CANCER
     Route: 042
  2. CAMPTOSAR [Suspect]
     Indication: COLORECTAL CANCER
     Route: 042

REACTIONS (2)
  - DYSPNOEA [None]
  - LUNG DISORDER [None]
